FAERS Safety Report 7121116-5 (Version None)
Quarter: 2010Q4

REPORT INFORMATION
  Report Type: 
  Country: None (occurrence: None)
  Receive Date: 20101124
  Receipt Date: 20100505
  Transmission Date: 20110411
  Serious: Yes (Other)
  Sender: FDA-Public Use
  Company Number: US-PFIZER INC-2010057373

PATIENT
  Sex: Female

DRUGS (5)
  1. TIKOSYN [Suspect]
     Indication: ATRIAL FIBRILLATION
     Dosage: 0.25 MG, 2X/DAY
     Route: 048
     Dates: start: 20100427
  2. EFFEXOR [Concomitant]
     Dosage: UNK
  3. AMBIEN [Concomitant]
     Dosage: UNK
  4. DARVOCET [Concomitant]
     Dosage: UNK
  5. PROMETHAZINE [Concomitant]
     Dosage: UNK

REACTIONS (1)
  - ARRHYTHMIA [None]
